FAERS Safety Report 7021518-1 (Version None)
Quarter: 2010Q3

REPORT INFORMATION
  Report Type: 
  Country: None (occurrence: None)
  Receive Date: 20100929
  Receipt Date: 20100924
  Transmission Date: 20110219
  Serious: Yes (Death)
  Sender: FDA-Public Use
  Company Number: DE-SANOFI-AVENTIS-2010SA047865

PATIENT
  Age: 69 Year

DRUGS (5)
  1. CLOPIDOGREL BISULFATE [Suspect]
     Indication: ACUTE CORONARY SYNDROME
     Route: 065
     Dates: start: 20100729, end: 20100729
  2. CLOPIDOGREL BISULFATE [Suspect]
     Route: 065
     Dates: start: 20100701, end: 20100801
  3. ACETYLSALICYLIC ACID [Suspect]
     Route: 065
  4. HEPARIN [Suspect]
     Route: 065
  5. BIVALIRUDIN [Suspect]
     Route: 065

REACTIONS (4)
  - DISSEMINATED INTRAVASCULAR COAGULATION [None]
  - MULTI-ORGAN FAILURE [None]
  - PNEUMONIA [None]
  - SEPSIS [None]
